FAERS Safety Report 7776899-8 (Version None)
Quarter: 2011Q3

REPORT INFORMATION
  Report Type: 
  Country: None (occurrence: None)
  Receive Date: 20110923
  Receipt Date: 20110923
  Transmission Date: 20111222
  Serious: No
  Sender: FDA-Public Use
  Company Number: None

PATIENT
  Age: 77 Year
  Sex: Male
  Weight: 90.6 kg

DRUGS (1)
  1. IRON DEXTRAN [Suspect]
     Dosage: 1000 MG ONCE IV
     Route: 042
     Dates: start: 20101019, end: 20101019

REACTIONS (1)
  - HYPOTENSION [None]
